FAERS Safety Report 8449783-4 (Version None)
Quarter: 2012Q2

REPORT INFORMATION
  Report Type: 
  Country: None (occurrence: None)
  Receive Date: 20120614
  Receipt Date: 20120614
  Transmission Date: 20120825
  Serious: Yes (Other)
  Sender: FDA-Public Use
  Company Number: None

PATIENT
  Age: 58 Year
  Sex: Female
  Weight: 80.5 kg

DRUGS (2)
  1. BUDESONIDE [Suspect]
     Indication: CROHN'S DISEASE
     Dosage: 3 MG EVERY DAY ORAL
     Route: 048
  2. ASACOL [Concomitant]

REACTIONS (1)
  - HYPERSENSITIVITY [None]
